FAERS Safety Report 21391431 (Version 1)
Quarter: 2022Q3

REPORT INFORMATION
  Report Type: Spontaneous
  Country: US (occurrence: US)
  Receive Date: 20220929
  Receipt Date: 20220929
  Transmission Date: 20221027
  Serious: Yes (Other)
  Sender: FDA-Public Use
  Company Number: US-PFIZER INC-202201179684

PATIENT
  Age: 17 Year
  Sex: Female
  Weight: 61.69 kg

DRUGS (2)
  1. DEPO-PROVERA [Suspect]
     Active Substance: MEDROXYPROGESTERONE ACETATE
     Indication: Contraception
     Dosage: 150MG IM 1ML EVERY 3 MONTHS
     Route: 030
     Dates: start: 20210304
  2. HUMIRA [Concomitant]
     Active Substance: ADALIMUMAB
     Indication: Chorioretinitis
     Dosage: 0.4 ML [INTO SKIN EVERY 14 DAYS]
     Dates: start: 20220920

REACTIONS (4)
  - Scleritis [Unknown]
  - Incorrect dose administered by device [Unknown]
  - Device leakage [Unknown]
  - Syringe issue [Unknown]

NARRATIVE: CASE EVENT DATE: 20220316
